FAERS Safety Report 7549752-2 (Version None)
Quarter: 2011Q2

REPORT INFORMATION
  Report Type: 
  Country: None (occurrence: None)
  Receive Date: 20110615
  Receipt Date: 20060914
  Transmission Date: 20111010
  Serious: Yes (Death, Other)
  Sender: FDA-Public Use
  Company Number: PHFR2006GB02452

PATIENT
  Sex: Female

DRUGS (2)
  1. CLOZAPINE [Suspect]
     Indication: SCHIZOPHRENIA
     Dosage: 300MG DAILY
     Route: 048
     Dates: start: 19911010
  2. INSULIN [Concomitant]
     Indication: DIABETES MELLITUS
     Route: 065

REACTIONS (8)
  - TRACHEAL DISORDER [None]
  - SUDDEN DEATH [None]
  - BRAIN STEM STROKE [None]
  - DIABETES MELLITUS [None]
  - NERVOUS SYSTEM DISORDER [None]
  - BRONCHITIS [None]
  - TRACHEOBRONCHITIS [None]
  - INFECTION [None]
